FAERS Safety Report 4825201-X (Version None)
Quarter: 2005Q4

REPORT INFORMATION
  Report Type: 
  Country: None (occurrence: None)
  Receive Date: 20051109
  Receipt Date: 20051103
  Transmission Date: 20060501
  Serious: Yes (Hospitalization, Other)
  Sender: FDA-Public Use
  Company Number: 2005095554

PATIENT
  Age: 74 Year
  Sex: Male

DRUGS (2)
  1. CABERGOLINE [Suspect]
     Indication: PARKINSONISM
  2. L-DOPA (LEVODOPA) [Concomitant]

REACTIONS (5)
  - ACUTE PULMONARY OEDEMA [None]
  - CARDIAC VALVE DISEASE [None]
  - CARDIOMEGALY [None]
  - DILATATION ATRIAL [None]
  - MITRAL VALVE INCOMPETENCE [None]
